FAERS Safety Report 17080349 (Version 2)
Quarter: 2020Q1

REPORT INFORMATION
  Report Type: Report from Study
  Country: IT (occurrence: IT)
  Receive Date: 20191127
  Receipt Date: 20200204
  Transmission Date: 20200409
  Serious: Yes (Hospitalization)
  Sender: FDA-Public Use
  Company Number: IT-TEVA-2019-IT-1141914

PATIENT
  Age: 93 Year
  Sex: Female

DRUGS (3)
  1. FUROSEMIDE. [Interacting]
     Active Substance: FUROSEMIDE
     Indication: HYPERTENSION
     Dosage: 25 MG, DAILY
     Route: 048
     Dates: start: 20190313
  2. ACETYLSALICYLIC ACID [Interacting]
     Active Substance: ASPIRIN
     Dosage: 100 MG, DAILY
     Route: 048
     Dates: start: 20190313
  3. CLOPIDOGREL [Suspect]
     Active Substance: CLOPIDOGREL BISULFATE
     Dosage: 75 MG, DAILY
     Route: 048
     Dates: start: 20190313

REACTIONS (3)
  - Hypokalaemia [Recovering/Resolving]
  - Drug interaction [Recovering/Resolving]
  - Ecchymosis [Recovering/Resolving]

NARRATIVE: CASE EVENT DATE: 20190914
